FAERS Safety Report 10676809 (Version 2)
Quarter: 2014Q4

REPORT INFORMATION
  Report Type: Spontaneous
  Country: CH (occurrence: CH)
  Receive Date: 20141226
  Receipt Date: 20141226
  Transmission Date: 20150529
  Serious: Yes (Life-Threatening, Hospitalization, Other)
  Sender: FDA-Public Use
  Company Number: CH-BAYER-2014-173783

PATIENT
  Age: 32 Year
  Sex: Female
  Weight: 60 kg

DRUGS (1)
  1. JAYDESS [Suspect]
     Active Substance: LEVONORGESTREL
     Indication: CONTRACEPTION
     Dosage: 14 MCG/24HR, CONT
     Route: 015
     Dates: start: 20140507

REACTIONS (5)
  - Ectopic pregnancy with contraceptive device [None]
  - Drug ineffective [None]
  - Acute abdomen [None]
  - Anaemia [Recovered/Resolved]
  - Ruptured ectopic pregnancy [None]

NARRATIVE: CASE EVENT DATE: 20141115
